FAERS Safety Report 21825111 (Version 1)
Quarter: 2023Q1

REPORT INFORMATION
  Report Type: Report from Study
  Country: CA (occurrence: CA)
  Receive Date: 20230105
  Receipt Date: 20230105
  Transmission Date: 20230417
  Serious: Yes (Hospitalization)
  Sender: FDA-Public Use
  Company Number: CA-KOREA IPSEN Pharma-2022-31706

PATIENT
  Age: 82 Year
  Sex: Male

DRUGS (4)
  1. LANREOTIDE ACETATE [Suspect]
     Active Substance: LANREOTIDE ACETATE
     Indication: Carcinoid syndrome
     Dosage: 120MG
     Dates: start: 20220512, end: 2022
  2. LANREOTIDE ACETATE [Suspect]
     Active Substance: LANREOTIDE ACETATE
     Dosage: 120MG
     Route: 058
     Dates: start: 2022
  3. FINASTERIDE [Concomitant]
     Active Substance: FINASTERIDE
     Dosage: 5 MG PER ORAL DIE
  4. SILODOSIN [Concomitant]
     Active Substance: SILODOSIN
     Dosage: 8 MG PER ORAL DIE

REACTIONS (8)
  - Heart valve replacement [Unknown]
  - Cardiac disorder [Unknown]
  - Chest pain [Unknown]
  - Arrhythmia [Unknown]
  - Cardiac arrest [Unknown]
  - Fatigue [Unknown]
  - Off label use [Unknown]
  - Hospitalisation [Unknown]

NARRATIVE: CASE EVENT DATE: 20220101
